FAERS Safety Report 20145586 (Version 2)
Quarter: 2021Q4

REPORT INFORMATION
  Report Type: Spontaneous
  Country: CA (occurrence: CA)
  Receive Date: 20211203
  Receipt Date: 20211216
  Transmission Date: 20220304
  Serious: Yes (Death, Other)
  Sender: FDA-Public Use
  Company Number: CA-MALLINCKRODT-T202105311

PATIENT
  Age: 64 Year
  Sex: Male

DRUGS (4)
  1. INOMAX [Suspect]
     Active Substance: NITRIC OXIDE
     Indication: Acute respiratory distress syndrome
     Dosage: 20 PPM (INHALATION)
     Route: 055
  2. INOMAX [Suspect]
     Active Substance: NITRIC OXIDE
     Indication: COVID-19
  3. METHYLPREDNISOLONE [Suspect]
     Active Substance: METHYLPREDNISOLONE
     Indication: Acute respiratory distress syndrome
     Dosage: 40 MILLIGRAM, BID
     Route: 042
  4. METHYLPREDNISOLONE [Suspect]
     Active Substance: METHYLPREDNISOLONE
     Indication: Interstitial lung disease
     Dosage: 1000 MILLIGRAM
     Route: 042

REACTIONS (7)
  - COVID-19 [Fatal]
  - Pulmonary tuberculosis [Fatal]
  - Acute kidney injury [Unknown]
  - Bacteraemia [Unknown]
  - Pneumonia bacterial [Unknown]
  - Product use in unapproved indication [Unknown]
  - Product use issue [Unknown]
